FAERS Safety Report 9999659 (Version 1)
Quarter: 2014Q1

REPORT INFORMATION
  Report Type: Spontaneous
  Country: FR (occurrence: FR)
  Receive Date: 20140312
  Receipt Date: 20140312
  Transmission Date: 20141002
  Serious: Yes (Hospitalization)
  Sender: FDA-Public Use
  Company Number: FR-009507513-1403FRA005185

PATIENT
  Age: 19 Year
  Sex: Female

DRUGS (1)
  1. TEMODAL [Suspect]
     Dosage: UNK
     Route: 065
     Dates: start: 20140116, end: 20140120

REACTIONS (1)
  - Hepatocellular injury [Recovering/Resolving]
